FAERS Safety Report 7738655-6 (Version None)
Quarter: 2011Q3

REPORT INFORMATION
  Report Type: 
  Country: None (occurrence: None)
  Receive Date: 20110908
  Receipt Date: 20110901
  Transmission Date: 20111222
  Serious: Yes (Life-Threatening)
  Sender: FDA-Public Use
  Company Number: JP-MERCK-1011USA03553

PATIENT
  Age: 62 Year
  Sex: Male

DRUGS (7)
  1. CISPLATIN [Concomitant]
     Route: 065
     Dates: start: 20100526
  2. FLUOROURACIL [Concomitant]
     Route: 065
     Dates: start: 20100526, end: 20100530
  3. DEXAMETHASONE SODIUM PHOSPHATE [Concomitant]
     Route: 065
     Dates: start: 20100526
  4. EMEND [Suspect]
     Route: 048
     Dates: start: 20100527, end: 20100528
  5. TAXOTERE [Suspect]
     Indication: TONGUE NEOPLASM MALIGNANT STAGE UNSPECIFIED
     Route: 041
     Dates: start: 20100526, end: 20100526
  6. GRANISETRON HYDROCHLORIDE [Concomitant]
     Route: 065
     Dates: start: 20100526
  7. EMEND [Suspect]
     Indication: PROPHYLAXIS OF NAUSEA AND VOMITING
     Route: 048
     Dates: start: 20100526, end: 20100526

REACTIONS (5)
  - PHARYNGEAL INFLAMMATION [None]
  - RADIATION SKIN INJURY [None]
  - AGRANULOCYTOSIS [None]
  - DRUG INTERACTION [None]
  - SEPTIC SHOCK [None]
